FAERS Safety Report 8034918 (Version 3)
Quarter: 2018Q4

REPORT INFORMATION
  Report Type: Spontaneous
  Country: SE (occurrence: SE)
  Receive Date: 20110714
  Receipt Date: 20181205
  Transmission Date: 20190205
  Serious: Yes (Hospitalization, Other)
  Sender: FDA-Public Use
  Company Number: SE-PFIZER INC-2011155503

PATIENT
  Age: 64 Year
  Sex: Male

DRUGS (1)
  1. TOVIAZ [Suspect]
     Active Substance: FESOTERODINE FUMARATE
     Indication: URINARY INCONTINENCE
     Dosage: 8 MG, 1X/DAY
     Route: 048
     Dates: start: 20110413, end: 20110426

REACTIONS (7)
  - Urinary retention [Recovered/Resolved with Sequelae]
  - Fluid intake reduced [Unknown]
  - Hypophagia [Unknown]
  - Hyperkalaemia [Unknown]
  - Wheezing [Unknown]
  - Acidosis [Unknown]
  - Tachycardia [Recovered/Resolved with Sequelae]

NARRATIVE: CASE EVENT DATE: 2011
